FAERS Safety Report 7775743-2 (Version None)
Quarter: 2011Q3

REPORT INFORMATION
  Report Type: 
  Country: None (occurrence: None)
  Receive Date: 20110923
  Receipt Date: 20110915
  Transmission Date: 20111222
  Serious: Yes (Other)
  Sender: FDA-Public Use
  Company Number: AU-BRISTOL-MYERS SQUIBB COMPANY-15630924

PATIENT
  Age: 72 Year
  Sex: Male
  Weight: 103 kg

DRUGS (2)
  1. AVAPRO [Suspect]
     Indication: HYPERTENSION
     Dosage: TAKEN FOR THE PAST 10-15 YEARS, MORNING
     Dates: start: 20000101
  2. NAPROSYN [Suspect]
     Dosage: SR TABS 1000 MG

REACTIONS (5)
  - SKIN CANCER [None]
  - BLOOD SODIUM DECREASED [None]
  - ARTHROPATHY [None]
  - BACK PAIN [None]
  - PROSTATIC DISORDER [None]
